FAERS Safety Report 16556825 (Version 4)
Quarter: 2021Q2

REPORT INFORMATION
  Report Type: Spontaneous
  Country: CA (occurrence: CA)
  Receive Date: 20190711
  Receipt Date: 20210416
  Transmission Date: 20210716
  Serious: Yes (Other)
  Sender: FDA-Public Use
  Company Number: CA-SAMSUNG BIOEPIS-SB-2019-17814

PATIENT
  Age: 73 Year
  Sex: Male
  Weight: 69 kg

DRUGS (3)
  1. INFLIXIMAB [Suspect]
     Active Substance: INFLIXIMAB
     Indication: COLITIS ULCERATIVE
     Route: 042
  2. ACETAMINOPHEN. [Concomitant]
     Active Substance: ACETAMINOPHEN
     Indication: PRODUCT USED FOR UNKNOWN INDICATION
     Route: 048
  3. ASACOL [Concomitant]
     Active Substance: MESALAMINE
     Indication: PRODUCT USED FOR UNKNOWN INDICATION
     Dosage: ENTERIC COATED, DOSE: UNKNOWN
     Route: 065

REACTIONS (16)
  - Off label use [Recovered/Resolved]
  - Weight increased [Recovered/Resolved]
  - Arthralgia [Recovered/Resolved]
  - Blood pressure fluctuation [Unknown]
  - Blood pressure increased [Recovered/Resolved]
  - Intentional product use issue [Recovered/Resolved]
  - Rash [Recovered/Resolved]
  - Product use issue [Recovered/Resolved]
  - Arthritis [Recovered/Resolved]
  - Erythema [Recovered/Resolved]
  - Hypertension [Recovered/Resolved]
  - Infection [Recovered/Resolved]
  - Inappropriate schedule of product administration [Unknown]
  - Fatigue [Recovered/Resolved]
  - Heart rate irregular [Recovered/Resolved]
  - Condition aggravated [Recovered/Resolved]
